FAERS Safety Report 16527676 (Version 2)
Quarter: 2019Q3

REPORT INFORMATION
  Report Type: Report from Study
  Country: US (occurrence: US)
  Receive Date: 20190703
  Receipt Date: 20190719
  Transmission Date: 20191004
  Serious: Yes (Death)
  Sender: FDA-Public Use
  Company Number: US-TESAROUBC-2019-TSO02406-US

PATIENT
  Age: 38 Year
  Sex: Female
  Weight: 87.75 kg

DRUGS (2)
  1. ZEJULA [Suspect]
     Active Substance: NIRAPARIB
     Indication: OVARIAN CANCER
     Dosage: 200 MG, QD
     Route: 048
  2. IBRANCE [Suspect]
     Active Substance: PALBOCICLIB
     Indication: PRODUCT USED FOR UNKNOWN INDICATION
     Dosage: UNK

REACTIONS (3)
  - Respiratory distress [Fatal]
  - Ovarian cancer metastatic [Fatal]
  - Clostridium difficile infection [Fatal]

NARRATIVE: CASE EVENT DATE: 201906
